FAERS Safety Report 13987002 (Version 2)
Quarter: 2017Q3

REPORT INFORMATION
  Report Type: Spontaneous
  Country: US (occurrence: US)
  Receive Date: 20170919
  Receipt Date: 20170926
  Transmission Date: 20171128
  Serious: Yes (Other)
  Sender: FDA-Public Use
  Company Number: US-009507513-1709USA008708

PATIENT
  Age: 60 Year
  Sex: Female
  Weight: 72 kg

DRUGS (4)
  1. CUBICIN [Suspect]
     Active Substance: DAPTOMYCIN
     Indication: BACTERAEMIA
     Dosage: 8 MG/KG, DAILY ON DAY 25
     Route: 042
  2. VANCOMYCIN [Suspect]
     Active Substance: VANCOMYCIN
     Indication: STAPHYLOCOCCAL BACTERAEMIA
     Dosage: 500 MG, Q12H
     Route: 042
  3. CEFTAROLINE FOSAMIL ACETATE [Concomitant]
     Active Substance: CEFTAROLINE FOSAMIL
     Indication: BACTERAEMIA
     Dosage: 600 MG, EVERY 8 HOURS
     Route: 042
  4. CUBICIN [Suspect]
     Active Substance: DAPTOMYCIN
     Dosage: 6 MG/KG, DAILY ON DAY 11
     Route: 042

REACTIONS (2)
  - Drug ineffective [Unknown]
  - Eosinophilia [Recovered/Resolved]
